FAERS Safety Report 7234009-X (Version None)
Quarter: 2011Q1

REPORT INFORMATION
  Report Type: 
  Country: None (occurrence: None)
  Receive Date: 20110119
  Receipt Date: 20101011
  Transmission Date: 20110831
  Serious: No
  Sender: FDA-Public Use
  Company Number: US-BAYER-201022471BCC

PATIENT
  Sex: Female
  Weight: 95.238 kg

DRUGS (1)
  1. ALEVE [Suspect]
     Indication: MYALGIA
     Dosage: A HANDFUL CAPLETS
     Route: 048
     Dates: start: 20101009, end: 20101009

REACTIONS (1)
  - NO ADVERSE EVENT [None]
